FAERS Safety Report 21786977 (Version 1)
Quarter: 2022Q4

REPORT INFORMATION
  Report Type: Spontaneous
  Country: TW (occurrence: TW)
  Receive Date: 20221228
  Receipt Date: 20221228
  Transmission Date: 20230113
  Serious: Yes (Death, Other)
  Sender: FDA-Public Use
  Company Number: TW-TAKEDA-2022TUS101881

PATIENT
  Age: 60 Year
  Sex: Female

DRUGS (8)
  1. MOBOCERTINIB [Suspect]
     Active Substance: MOBOCERTINIB
     Indication: Lung adenocarcinoma
     Dosage: 80 MILLIGRAM
     Route: 065
     Dates: start: 20210518
  2. MOBOCERTINIB [Suspect]
     Active Substance: MOBOCERTINIB
     Indication: Metastases to central nervous system
  3. AFATINIB [Suspect]
     Active Substance: AFATINIB
     Indication: Adenosquamous cell lung cancer
     Dosage: UNK
     Route: 065
     Dates: start: 20210915
  4. AFATINIB [Suspect]
     Active Substance: AFATINIB
     Indication: Metastases to bone
  5. AFATINIB [Suspect]
     Active Substance: AFATINIB
     Indication: Metastases to central nervous system
  6. PEMETREXED [Suspect]
     Active Substance: PEMETREXED
     Indication: Lung adenocarcinoma
     Dosage: UNK
     Route: 065
  7. PEMETREXED [Suspect]
     Active Substance: PEMETREXED
     Indication: Metastases to central nervous system
  8. ERLOTINIB [Concomitant]
     Active Substance: ERLOTINIB
     Dosage: UNK
     Route: 065

REACTIONS (2)
  - Death [Fatal]
  - Off label use [Unknown]

NARRATIVE: CASE EVENT DATE: 20211201
